FAERS Safety Report 11750658 (Version 1)
Quarter: 2015Q4

REPORT INFORMATION
  Report Type: Report from Study
  Country: US (occurrence: US)
  Receive Date: 20151118
  Receipt Date: 20151118
  Transmission Date: 20160304
  Serious: No
  Sender: FDA-Public Use
  Company Number: US-CELGENEUS-USA-2015101369

PATIENT
  Age: 50 Year

DRUGS (4)
  1. REVLIMID [Suspect]
     Active Substance: LENALIDOMIDE
     Indication: LIGHT CHAIN DISEASE
     Route: 048
  2. DEXAMETHASONE. [Concomitant]
     Active Substance: DEXAMETHASONE
     Indication: LIGHT CHAIN DISEASE
     Route: 065
  3. VELCADE [Concomitant]
     Active Substance: BORTEZOMIB
     Indication: LIGHT CHAIN DISEASE
     Route: 065
  4. CYTOXAN [Concomitant]
     Active Substance: CYCLOPHOSPHAMIDE
     Indication: LIGHT CHAIN DISEASE
     Route: 065

REACTIONS (5)
  - Fatigue [Unknown]
  - Light chain analysis increased [Unknown]
  - Protein urine present [Unknown]
  - Back pain [Unknown]
  - Blood count abnormal [Unknown]
